FAERS Safety Report 10152153 (Version 1)
Quarter: 2014Q2

REPORT INFORMATION
  Report Type: Spontaneous
  Country: US (occurrence: US)
  Receive Date: 20140505
  Receipt Date: 20140505
  Transmission Date: 20141212
  Serious: No
  Sender: FDA-Public Use
  Company Number: US-BAYER-2014-056584

PATIENT
  Age: 81 Year
  Sex: Female
  Weight: 90.7 kg

DRUGS (8)
  1. ALEVE CAPLET [Suspect]
     Dosage: UNK
  2. BAYER ASPIRIN REGIMEN REGULAR 325 MG STRENGTH [Concomitant]
  3. LEVOTHYROXINE SODIUM [Concomitant]
  4. VESICARE [SOLIFENACIN] [Concomitant]
  5. PRAMIPEXOLE DIHYDROCHLORIDE [Concomitant]
  6. VITAMIN D [Concomitant]
  7. ZOLOFT [Concomitant]
  8. PRAVASTATIN SODIUM [Concomitant]

REACTIONS (1)
  - Drug hypersensitivity [None]
